FAERS Safety Report 9377052 (Version 3)
Quarter: 2013Q3

REPORT INFORMATION
  Report Type: Spontaneous
  Country: US (occurrence: US)
  Receive Date: 20130701
  Receipt Date: 20130820
  Transmission Date: 20140515
  Serious: Yes (Death)
  Sender: FDA-Public Use
  Company Number: US-BRACCO-009710

PATIENT
  Age: 60 Year
  Sex: Male
  Weight: 92 kg

DRUGS (6)
  1. MULTIHANCE [Suspect]
     Indication: NUCLEAR MAGNETIC RESONANCE IMAGING
     Route: 042
     Dates: start: 20130622, end: 20130622
  2. LISINOPRIL [Concomitant]
     Route: 048
  3. TRICOR [Concomitant]
     Route: 048
  4. CARBAMAZEPINE [Concomitant]
     Dosage: 100MG TID
     Route: 048
  5. PHENOBARBITAL [Concomitant]
     Dosage: 30 MG BID
     Route: 048
  6. ASPIRIN [Concomitant]
     Route: 048

REACTIONS (2)
  - Anaphylactic reaction [Fatal]
  - Cardio-respiratory arrest [Fatal]
